FAERS Safety Report 23252366 (Version 3)
Quarter: 2024Q1

REPORT INFORMATION
  Report Type: Report from Study
  Country: CL (occurrence: CL)
  Receive Date: 20231201
  Receipt Date: 20240327
  Transmission Date: 20240409
  Serious: Yes (Other)
  Sender: FDA-Public Use
  Company Number: CL-JNJFOC-20231172567

PATIENT
  Age: 27 Year
  Sex: Male

DRUGS (1)
  1. SIMPONI [Suspect]
     Active Substance: GOLIMUMAB
     Indication: Psoriatic arthropathy
     Dosage: LAST DATE OF ADHERENCE REGISTERED 19-OCT-2023
     Route: 058
     Dates: start: 20230922

REACTIONS (2)
  - Hordeolum [Recovered/Resolved]
  - Inappropriate schedule of product administration [Unknown]
